FAERS Safety Report 13325808 (Version 2)
Quarter: 2017Q2

REPORT INFORMATION
  Report Type: Report from Study
  Country: None (occurrence: US)
  Receive Date: 20170310
  Receipt Date: 20170426
  Transmission Date: 20170830
  Serious: Yes (Hospitalization)
  Sender: FDA-Public Use
  Company Number: US-ABBVIE-17P-163-1899947-00

PATIENT
  Age: 62 Year
  Sex: Male

DRUGS (2)
  1. VIEKIRA PAK [Suspect]
     Active Substance: DASABUVIR\OMBITASVIR\PARITAPREVIR\RITONAVIR
     Indication: CHRONIC HEPATITIS C
     Dosage: PER MANUFACTURER PACKAGE INSTRUCTION
     Route: 048
     Dates: start: 20170216, end: 201702
  2. MODERIBA [Suspect]
     Active Substance: RIBAVIRIN
     Indication: CHRONIC HEPATITIS C
     Route: 048
     Dates: start: 201702, end: 201702

REACTIONS (10)
  - Lethargy [Unknown]
  - Swelling face [Unknown]
  - Dysarthria [Unknown]
  - Asthenia [Unknown]
  - Hypersensitivity [Unknown]
  - Fatigue [Recovered/Resolved]
  - Peripheral swelling [Unknown]
  - Pyrexia [Unknown]
  - Chills [Recovered/Resolved]
  - Rash [Recovered/Resolved]

NARRATIVE: CASE EVENT DATE: 20170220
